FAERS Safety Report 12421042 (Version 1)
Quarter: 2016Q2

REPORT INFORMATION
  Report Type: Spontaneous
  Country: FR (occurrence: FR)
  Receive Date: 20160531
  Receipt Date: 20160531
  Transmission Date: 20160815
  Serious: Yes (Hospitalization)
  Sender: FDA-Public Use
  Company Number: PHHY2016FR074176

PATIENT
  Age: 54 Year
  Sex: Female

DRUGS (2)
  1. REVOLADE [Suspect]
     Active Substance: ELTROMBOPAG
     Indication: IMMUNE THROMBOCYTOPENIC PURPURA
     Dosage: UNK
     Route: 048
     Dates: start: 20160417
  2. REVOLADE [Suspect]
     Active Substance: ELTROMBOPAG
     Dosage: DOSE INCREASED
     Route: 048
     Dates: start: 20160424

REACTIONS (3)
  - Hepatocellular injury [Not Recovered/Not Resolved]
  - Hepatic vein occlusion [Not Recovered/Not Resolved]
  - Gastrointestinal disorder [Unknown]

NARRATIVE: CASE EVENT DATE: 20160512
